FAERS Safety Report 5643940-8 (Version None)
Quarter: 2008Q1

REPORT INFORMATION
  Report Type: 
  Country: None (occurrence: None)
  Receive Date: 20080226
  Receipt Date: 20080219
  Transmission Date: 20080703
  Serious: Yes (Other)
  Sender: FDA-Public Use
  Company Number: CHPA2008US03078

PATIENT
  Age: 72 Year
  Sex: Male

DRUGS (5)
  1. MAALOX ANTIACID/ANTIGAS MAX STR MULTI SYMPTOM (NCH)(MAGNESIUM HYDROXID [Suspect]
     Dosage: ORAL
     Route: 048
     Dates: start: 20080217, end: 20080217
  2. PRILOSEC [Concomitant]
  3. GLYBURIDE [Concomitant]
  4. METFORMIN (METFORMIN) [Concomitant]
  5. JANUMET (METFORMIN HYDROCHLORIDE, SITAGLIPTIN PHOSPHATE) [Concomitant]

REACTIONS (3)
  - ERYTHEMA [None]
  - OEDEMA PERIPHERAL [None]
  - PRURITUS [None]
